FAERS Safety Report 8625898-2 (Version None)
Quarter: 2012Q3

REPORT INFORMATION
  Report Type: 
  Country: None (occurrence: None)
  Receive Date: 20120827
  Receipt Date: 20120822
  Transmission Date: 20120928
  Serious: Yes (Other)
  Sender: FDA-Public Use
  Company Number: IE-ROCHE-1106782

PATIENT
  Sex: Male

DRUGS (2)
  1. LYRICA [Concomitant]
  2. NAPROSYN [Suspect]
     Indication: RHEUMATOID ARTHRITIS
     Dates: start: 20040901, end: 20120816

REACTIONS (1)
  - RENAL IMPAIRMENT [None]
